FAERS Safety Report 6920379-6 (Version None)
Quarter: 2010Q3

REPORT INFORMATION
  Report Type: 
  Country: None (occurrence: None)
  Receive Date: 20100804
  Receipt Date: 20100129
  Transmission Date: 20110219
  Serious: No
  Sender: FDA-Public Use
  Company Number: 2010-0352

PATIENT
  Age: 57 Year
  Sex: Female
  Weight: 76.8 kg

DRUGS (17)
  1. SOMATULINE DEPOT [Suspect]
     Indication: BLOOD GROWTH HORMONE INCREASED
     Dosage: 90MG (90 MG, 1 IN 4 WK),SUBCUTANEOUS; 60 MG (60 MG, NOT REPORTED),
     Route: 058
     Dates: start: 20091220
  2. SOMATULINE DEPOT [Suspect]
     Indication: BRAIN NEOPLASM
     Dosage: 90MG (90 MG, 1 IN 4 WK),SUBCUTANEOUS; 60 MG (60 MG, NOT REPORTED),
     Route: 058
     Dates: start: 20091220
  3. KAPIDEX (ALL ORTHER THERAPEUTIC PRODUCTS) [Concomitant]
  4. MULTIVITAMIN (MULTIVITAMIN) /00831701/) [Concomitant]
  5. VITAMIN A [Concomitant]
  6. ASCORBIC ACID [Concomitant]
  7. ZINC (ZINC) [Concomitant]
  8. DECOLATE SODIUM (ALL OTHER THERAPEUTIC PRODUCTS) [Concomitant]
  9. SIMETHICAN (DIMETICONE, ACTIVATED) [Concomitant]
  10. LORAZEPAM [Concomitant]
  11. ASPIRIN [Concomitant]
  12. PROPOXYPHENE HCL [Concomitant]
  13. NEXIUM [Concomitant]
  14. HYDROCORTONE [Concomitant]
  15. LEVOTHYROXINE SODIUM [Concomitant]
  16. IRON (IRON) [Concomitant]
  17. CYDOBENZAPRINE (CYCLOBENZAPRINE) [Concomitant]

REACTIONS (18)
  - ABDOMINAL PAIN [None]
  - ALOPECIA [None]
  - ASTHENIA [None]
  - BRONCHITIS [None]
  - CONDITION AGGRAVATED [None]
  - DECREASED ACTIVITY [None]
  - DIARRHOEA [None]
  - DYSPNOEA [None]
  - FATIGUE [None]
  - GASTROOESOPHAGEAL REFLUX DISEASE [None]
  - HAIR TEXTURE ABNORMAL [None]
  - HOT FLUSH [None]
  - HYPERHIDROSIS [None]
  - INSOMNIA [None]
  - TREMOR [None]
  - VITAMIN B COMPLEX DEFICIENCY [None]
  - WEIGHT [None]
  - WEIGHT INCREASED [None]
